FAERS Safety Report 4891649-0 (Version None)
Quarter: 2005Q4

REPORT INFORMATION
  Report Type: 
  Country: None (occurrence: None)
  Receive Date: 20051220
  Receipt Date: 20051019
  Transmission Date: 20060501
  Serious: Yes (Other)
  Sender: FDA-Public Use
  Company Number: 422046

PATIENT
  Age: 50 Year
  Sex: Female
  Weight: 98.9 kg

DRUGS (1)
  1. BONIVA [Suspect]
     Indication: OSTEOPENIA
     Dosage: 150 MG 1 PER DAY ORAL
     Route: 048
     Dates: start: 20050813

REACTIONS (10)
  - ASTHENIA [None]
  - BACK PAIN [None]
  - BLOOD ALKALINE PHOSPHATASE INCREASED [None]
  - CHEST PAIN [None]
  - MUSCULAR WEAKNESS [None]
  - PAIN IN JAW [None]
  - PELVIC PAIN [None]
  - RED BLOOD CELL COUNT DECREASED [None]
  - SENSATION OF HEAVINESS [None]
  - URINARY INCONTINENCE [None]
